FAERS Safety Report 10298751 (Version 3)
Quarter: 2015Q3

REPORT INFORMATION
  Report Type: Spontaneous
  Country: US (occurrence: US)
  Receive Date: 20140711
  Receipt Date: 20150814
  Transmission Date: 20151125
  Serious: No
  Sender: FDA-Public Use
  Company Number: US-GILEAD-2013-0078126

PATIENT
  Age: 23 Year
  Sex: Female

DRUGS (3)
  1. LETAIRIS [Suspect]
     Active Substance: AMBRISENTAN
     Indication: CONGENITAL PULMONARY ARTERY ANOMALY
     Dosage: 10 MG, QD
     Dates: start: 20070907
  2. REMODULIN [Concomitant]
     Active Substance: TREPROSTINIL
  3. CIALIS [Concomitant]
     Active Substance: TADALAFIL

REACTIONS (1)
  - Dyspnoea [Unknown]
